FAERS Safety Report 13799339 (Version 3)
Quarter: 2017Q3

REPORT INFORMATION
  Report Type: Spontaneous
  Country: CN (occurrence: CN)
  Receive Date: 20170727
  Receipt Date: 20170928
  Transmission Date: 20171127
  Serious: Yes (Life-Threatening, Hospitalization)
  Sender: FDA-Public Use
  Company Number: CN-NOVOPROD-554680

PATIENT
  Age: 53 Year
  Sex: Male
  Weight: 55 kg

DRUGS (1)
  1. NOVOMIX 30 PENFILL [Suspect]
     Active Substance: INSULIN ASPART
     Indication: TYPE 2 DIABETES MELLITUS
     Dosage: 36 U, QD (20U IN THE MORNING, 16U IN THE EVENING)
     Route: 058
     Dates: start: 20170711, end: 20170715

REACTIONS (3)
  - Diabetic ketoacidosis [Recovering/Resolving]
  - Product container issue [Unknown]
  - Product quality issue [Unknown]

NARRATIVE: CASE EVENT DATE: 201707
